FAERS Safety Report 10777036 (Version 1)
Quarter: 2015Q1

REPORT INFORMATION
  Report Type: Spontaneous
  Country: US (occurrence: None)
  Receive Date: 20150206
  Receipt Date: 20150206
  Transmission Date: 20150721
  Serious: Yes (Disabling)
  Sender: FDA-Public Use
  Company Number: None

PATIENT
  Age: 76 Year
  Sex: Female
  Weight: 63.5 kg

DRUGS (13)
  1. CURCUMIN [Concomitant]
     Active Substance: CURCUMIN
  2. DIGESTIVE ENZYMES [Concomitant]
     Active Substance: UNSPECIFIED INGREDIENT
  3. VITAMIN B12 [Concomitant]
     Active Substance: CYANOCOBALAMIN
  4. HERBS [Concomitant]
  5. PROBIOTICS [Concomitant]
     Active Substance: PROBIOTICS NOS
  6. VITAMIN C [Concomitant]
     Active Substance: ASCORBIC ACID
  7. VITAMIN D3 [Concomitant]
     Active Substance: CHOLECALCIFEROL
  8. ZEAXANTHIN [Concomitant]
     Active Substance: ZEAXANTHIN
  9. COQ10 [Concomitant]
     Active Substance: UBIDECARENONE
  10. CIPROFLOXACIN. [Suspect]
     Active Substance: CIPROFLOXACIN
     Indication: URINARY TRACT INFECTION
     Dosage: 1 TABLET EVERY 12 HOURS TAKEN BY MOUTH
     Route: 048
  11. VITAMIN B6 [Concomitant]
     Active Substance: PYRIDOXINE HYDROCHLORIDE
  12. MULTIVITAMIN AND MINERAL [Concomitant]
  13. FISH OIL [Concomitant]
     Active Substance: FISH OIL

REACTIONS (8)
  - Neuropathy peripheral [None]
  - Tinnitus [None]
  - Tendon injury [None]
  - Pain in extremity [None]
  - Pain [None]
  - Mental impairment [None]
  - Tension [None]
  - Balance disorder [None]
